FAERS Safety Report 10163336 (Version 1)
Quarter: 2014Q2

REPORT INFORMATION
  Report Type: Spontaneous
  Country: BR (occurrence: BR)
  Receive Date: 20140509
  Receipt Date: 20140509
  Transmission Date: 20141212
  Serious: Yes (Hospitalization)
  Sender: FDA-Public Use
  Company Number: BR-JNJFOC-20140500166

PATIENT
  Age: 36 Year
  Sex: Male

DRUGS (1)
  1. INVEGA SUSTENNA [Suspect]
     Indication: SCHIZOPHRENIA
     Route: 030

REACTIONS (3)
  - Drug abuse [Not Recovered/Not Resolved]
  - Depressed mood [Not Recovered/Not Resolved]
  - Loss of libido [Not Recovered/Not Resolved]
